FAERS Safety Report 18823358 (Version 2)
Quarter: 2021Q1

REPORT INFORMATION
  Report Type: Report from Study
  Country: US (occurrence: US)
  Receive Date: 20210202
  Receipt Date: 20210329
  Transmission Date: 20210419
  Serious: Yes (Other)
  Sender: FDA-Public Use
  Company Number: US-TAKEDA-US201942350

PATIENT
  Age: 63 Year
  Sex: Female

DRUGS (2)
  1. CUVITRU [Suspect]
     Active Substance: HUMAN IMMUNOGLOBULIN G
     Dosage: 22 GRAM, Q2WEEKS
     Route: 065
  2. CUVITRU [Suspect]
     Active Substance: HUMAN IMMUNOGLOBULIN G
     Indication: PRIMARY IMMUNODEFICIENCY SYNDROME
     Dosage: 22 GRAM, 2/MONTH
     Route: 065

REACTIONS (5)
  - Inappropriate schedule of product administration [Unknown]
  - Arthritis [Unknown]
  - Cholecystectomy [Unknown]
  - Sinusitis [Unknown]
  - Insurance issue [Unknown]

NARRATIVE: CASE EVENT DATE: 20191205
